FAERS Safety Report 4383001-1 (Version None)
Quarter: 2004Q2

REPORT INFORMATION
  Report Type: 
  Country: None (occurrence: None)
  Receive Date: 20040528
  Receipt Date: 20040312
  Transmission Date: 20050107
  Serious: Yes (Hospitalization)
  Sender: FDA-Public Use
  Company Number: US-JNJFOC-20040102566

PATIENT
  Sex: Male

DRUGS (1)
  1. RISPERDAL CONSTA [Suspect]
     Indication: SCHIZOPHRENIA
     Dosage: , 1 IN 2 WEEK, INTRA-MUSCULAR
     Route: 030
     Dates: start: 20031215

REACTIONS (2)
  - EXTRAPYRAMIDAL DISORDER [None]
  - SCHIZOPHRENIA [None]
